FAERS Safety Report 23389230 (Version 3)
Quarter: 2025Q4

REPORT INFORMATION
  Report Type: Spontaneous
  Country: US (occurrence: US)
  Receive Date: 20240110
  Receipt Date: 20251203
  Transmission Date: 20260117
  Serious: Yes (Hospitalization, Other)
  Sender: CSL BEHRING
  Company Number: US-BEH-2024167196

PATIENT
  Sex: Female

DRUGS (5)
  1. BERINERT [Suspect]
     Active Substance: HUMAN C1-ESTERASE INHIBITOR
     Indication: Hereditary angioedema
     Dosage: 1000 IU, PRN
     Route: 042
     Dates: start: 201703
  2. BERINERT [Suspect]
     Active Substance: HUMAN C1-ESTERASE INHIBITOR
     Indication: Hereditary angioedema
     Dosage: 1000 IU, PRN
     Route: 042
     Dates: start: 201703
  3. BERINERT [Suspect]
     Active Substance: HUMAN C1-ESTERASE INHIBITOR
     Dosage: 1000 IU, DAILY AS NEEDED
     Route: 042
     Dates: start: 20240910
  4. BERINERT [Suspect]
     Active Substance: HUMAN C1-ESTERASE INHIBITOR
     Dosage: 1000 IU, DAILY AS NEEDED
     Route: 042
     Dates: start: 20240910
  5. RUCONEST [Concomitant]
     Active Substance: CONESTAT ALFA

REACTIONS (2)
  - Ventricular tachycardia [Unknown]
  - Retinal detachment [Not Recovered/Not Resolved]
